FAERS Safety Report 6541942-0 (Version None)
Quarter: 2010Q1

REPORT INFORMATION
  Report Type: 
  Country: None (occurrence: None)
  Receive Date: 20100119
  Receipt Date: 20100108
  Transmission Date: 20100710
  Serious: Yes (Hospitalization)
  Sender: FDA-Public Use
  Company Number: JP-SANOFI-AVENTIS-2009SA007126

PATIENT
  Age: 67 Year
  Sex: Female
  Weight: 36.8 kg

DRUGS (7)
  1. ZOLPIDEM TARTRATE [Suspect]
     Indication: INSOMNIA
     Route: 048
     Dates: start: 20091108
  2. DEPAKENE [Suspect]
     Indication: PROPHYLAXIS
     Route: 048
     Dates: start: 20091022, end: 20091130
  3. WARFARIN [Concomitant]
     Indication: ATRIAL FIBRILLATION
     Route: 048
  4. RIVOTRIL [Concomitant]
     Indication: PROPHYLAXIS
     Route: 048
     Dates: start: 20091022, end: 20091130
  5. MAINTATE [Concomitant]
     Indication: ATRIAL FIBRILLATION
     Route: 048
     Dates: start: 20091025, end: 20091120
  6. MAINTATE [Concomitant]
     Route: 048
     Dates: start: 20091025, end: 20091120
  7. BEPRICOR [Concomitant]
     Indication: ATRIAL FIBRILLATION
     Route: 048
     Dates: start: 20091114, end: 20091120

REACTIONS (1)
  - PANCYTOPENIA [None]
